FAERS Safety Report 6743423-8 (Version None)
Quarter: 2010Q2

REPORT INFORMATION
  Report Type: 
  Country: None (occurrence: None)
  Receive Date: 20100527
  Receipt Date: 20100517
  Transmission Date: 20101027
  Serious: Yes (Other)
  Sender: FDA-Public Use
  Company Number: PHHY2010BR32492

PATIENT
  Sex: Female

DRUGS (1)
  1. EXELON [Suspect]
     Indication: DEMENTIA ALZHEIMER'S TYPE
     Dosage: 9.5MG/CM2, 1 PATCH PER DAY
     Route: 062

REACTIONS (3)
  - APPLICATION SITE PRURITUS [None]
  - SKIN EXFOLIATION [None]
  - WOUND [None]
